FAERS Safety Report 13152316 (Version 1)
Quarter: 2017Q1

REPORT INFORMATION
  Report Type: Spontaneous
  Country: BR (occurrence: BR)
  Receive Date: 20170125
  Receipt Date: 20170125
  Transmission Date: 20170428
  Serious: Yes (Other)
  Sender: FDA-Public Use
  Company Number: BR-BAUSCH-BL-2017-001871

PATIENT
  Age: 30 Year
  Sex: Male
  Weight: 90 kg

DRUGS (1)
  1. EFURIX [Suspect]
     Active Substance: FLUOROURACIL
     Indication: CANDIDA INFECTION
     Dosage: 1 TO 2 TIMES PER DAY
     Route: 061
     Dates: start: 201701

REACTIONS (5)
  - Application site pain [Not Recovered/Not Resolved]
  - Vein rupture [Not Recovered/Not Resolved]
  - Off label use [Unknown]
  - Condition aggravated [Not Recovered/Not Resolved]
  - Application site wound [Not Recovered/Not Resolved]

NARRATIVE: CASE EVENT DATE: 201701
